FAERS Safety Report 4899123-2 (Version None)
Quarter: 2006Q1

REPORT INFORMATION
  Report Type: 
  Country: None (occurrence: None)
  Receive Date: 20060202
  Receipt Date: 20020325
  Transmission Date: 20060701
  Serious: Yes (Hospitalization, Other)
  Sender: FDA-Public Use
  Company Number: 200213010US

PATIENT
  Sex: Female
  Weight: 96.8 kg

DRUGS (8)
  1. ALLEGRA [Suspect]
     Indication: SEASONAL ALLERGY
     Dates: start: 20010701, end: 20020310
  2. AMPICILLIN SODIUM [Concomitant]
     Indication: SINUSITIS
     Route: 048
  3. AMPICILLIN SODIUM [Concomitant]
     Route: 048
     Dates: end: 20020101
  4. ALLERGY SHOTS [Concomitant]
     Indication: MULTIPLE ALLERGIES
     Dates: start: 20010701, end: 20010918
  5. ALLERGY SHOTS [Concomitant]
     Dates: start: 20020123
  6. ZOFRAN [Concomitant]
  7. TYLENOL W/ CODEINE NO. 3 [Concomitant]
     Dosage: DOSE: UNK
  8. SYNTHROID [Concomitant]

REACTIONS (12)
  - ABDOMINAL PAIN [None]
  - BACK PAIN [None]
  - BLOOD URINE PRESENT [None]
  - CYST [None]
  - DIARRHOEA [None]
  - FATIGUE [None]
  - HYPERHIDROSIS [None]
  - NAUSEA [None]
  - NECK PAIN [None]
  - PELVIC INFLAMMATORY DISEASE [None]
  - PELVIC PAIN [None]
  - WEIGHT INCREASED [None]
